FAERS Safety Report 5189767-5 (Version None)
Quarter: 2006Q4

REPORT INFORMATION
  Report Type: 
  Country: None (occurrence: None)
  Receive Date: 20061215
  Receipt Date: 20061204
  Transmission Date: 20070319
  Serious: Yes (Death, Hospitalization)
  Sender: FDA-Public Use
  Company Number: 2006142507

PATIENT
  Age: 48 Year
  Sex: Male

DRUGS (11)
  1. ZYVOX [Suspect]
     Indication: PULMONARY TUBERCULOSIS
     Dosage: 1200 MG (600 MG, 2 IN 1 D), ORAL
     Route: 048
     Dates: start: 20060613, end: 20061006
  2. PARA AMINOSALICYLIC ACID [Suspect]
     Indication: PULMONARY TUBERCULOSIS
     Dosage: 12 GRAM (1 IN 1 D), ORAL
     Route: 048
     Dates: start: 20060613
  3. IZILOX                 (MOXIFLOXACIN) [Suspect]
     Indication: PULMONARY TUBERCULOSIS
     Dosage: SEE IMAGE
     Route: 048
     Dates: start: 20060520, end: 20060613
  4. IZILOX                 (MOXIFLOXACIN) [Suspect]
     Indication: PULMONARY TUBERCULOSIS
     Dosage: SEE IMAGE
     Route: 048
     Dates: start: 20060613, end: 20061007
  5. ETHIONAMIDE                  (ETHIONAMIDE) [Suspect]
     Indication: PULMONARY TUBERCULOSIS
     Dosage: 1 GRAM (500 MG, 2 IN 1 D), ORAL
     Route: 048
     Dates: start: 20060613, end: 20060811
  6. CAPREOMYCIN                        (CAPREOMYCIN) [Suspect]
     Indication: PULMONARY TUBERCULOSIS
     Dosage: 1 GRAM (1 IN 1 D), INTRAVENOUS
     Route: 042
     Dates: start: 20060619, end: 20060801
  7. CYCLOSERINE [Suspect]
     Indication: PULMONARY TUBERCULOSIS
     Dosage: 1 GRAM (500 MG, 2 IN 1 D), ORAL
     Route: 048
     Dates: start: 20060613
  8. ETHAMBUTOL HYDROCHLORIDE [Concomitant]
  9. RIMIFON [Concomitant]
  10. PIRILENE (PYRAZINAMIDE) [Concomitant]
  11. AMIKACIN [Concomitant]

REACTIONS (20)
  - ABDOMINAL PAIN UPPER [None]
  - APLASTIC ANAEMIA [None]
  - DEAFNESS NEUROSENSORY [None]
  - DRUG TOXICITY [None]
  - ELECTROCARDIOGRAM REPOLARISATION ABNORMALITY [None]
  - ELECTROCARDIOGRAM T WAVE INVERSION [None]
  - GASTROINTESTINAL DISORDER [None]
  - GENERAL PHYSICAL HEALTH DETERIORATION [None]
  - HEPATIC FAILURE [None]
  - HYPERTHYROIDISM [None]
  - HYPOTHYROIDISM [None]
  - LACTIC ACIDOSIS [None]
  - NORMOCHROMIC NORMOCYTIC ANAEMIA [None]
  - PERICARDIAL EFFUSION [None]
  - PERICARDITIS TUBERCULOUS [None]
  - PERIPHERAL SENSORY NEUROPATHY [None]
  - PULMONARY HYPERTENSION [None]
  - VISUAL ACUITY REDUCED [None]
  - VOMITING [None]
  - WEIGHT GAIN POOR [None]
